FAERS Safety Report 25047853 (Version 1)
Quarter: 2025Q1

REPORT INFORMATION
  Report Type: Spontaneous
  Country: US (occurrence: US)
  Receive Date: 20250306
  Receipt Date: 20250306
  Transmission Date: 20250409
  Serious: Yes (Other)
  Sender: JOHNSON AND JOHNSON
  Company Number: US-JNJFOC-20250269339

PATIENT

DRUGS (1)
  1. SPRAVATO [Suspect]
     Active Substance: ESKETAMINE
     Indication: Product used for unknown indication
     Route: 045

REACTIONS (7)
  - Hallucination [Unknown]
  - Dissociation [Unknown]
  - Paranoia [Unknown]
  - Vision blurred [Unknown]
  - Agitation [Unknown]
  - Nausea [Unknown]
  - Mania [Unknown]

NARRATIVE: CASE EVENT DATE: 20250224
